FAERS Safety Report 9956581 (Version 1)
Quarter: 2014Q1

REPORT INFORMATION
  Report Type: Report from Study
  Country: US (occurrence: US)
  Receive Date: 20140304
  Receipt Date: 20140304
  Transmission Date: 20141002
  Serious: No
  Sender: FDA-Public Use
  Company Number: US-ABBVIE-13P-163-1092881-00

PATIENT
  Age: 35 Year
  Sex: Male

DRUGS (3)
  1. HUMIRA [Suspect]
     Indication: COLITIS ULCERATIVE
     Dosage: LOADING DOSE
     Dates: start: 20130323, end: 20130323
  2. HUMIRA [Suspect]
     Dates: start: 20130406, end: 20130406
  3. HUMIRA [Suspect]
     Dosage: MAINTENANCE DOSE
     Dates: start: 20130420

REACTIONS (1)
  - Haemorrhage [Not Recovered/Not Resolved]
